FAERS Safety Report 10509370 (Version 1)
Quarter: 2014Q4

REPORT INFORMATION
  Report Type: Spontaneous
  Country: CH (occurrence: CH)
  Receive Date: 20141009
  Receipt Date: 20141009
  Transmission Date: 20150528
  Serious: Yes (Life-Threatening, Hospitalization)
  Sender: FDA-Public Use
  Company Number: PHHY2014CH128888

PATIENT
  Age: 69 Year
  Sex: Male

DRUGS (8)
  1. CONCOR [Concomitant]
     Active Substance: BISOPROLOL FUMARATE
     Indication: PRODUCT USED FOR UNKNOWN INDICATION
     Dosage: 1 DF, UNK
     Route: 048
  2. INEGY [Interacting]
     Active Substance: EZETIMIBE\SIMVASTATIN
     Indication: PROPHYLAXIS URINARY TRACT INFECTION
     Dosage: 1 DF, UNK
     Route: 048
  3. EUTHYROX [Concomitant]
     Active Substance: LEVOTHYROXINE SODIUM
     Indication: PRODUCT USED FOR UNKNOWN INDICATION
     Dosage: 0.025 MG, UNK
     Route: 048
  4. EXFORGE [Suspect]
     Active Substance: AMLODIPINE BESYLATE\VALSARTAN
     Indication: PROPHYLAXIS URINARY TRACT INFECTION
     Dosage: 1 DF, UNK (VALSARTAN 80 MG, AMLODIPINE 5 MG)
     Route: 048
  5. NORFLOXACIN [Suspect]
     Active Substance: NORFLOXACIN
     Indication: PROPHYLAXIS URINARY TRACT INFECTION
     Dosage: UNK UKN, UNK
     Route: 065
     Dates: start: 20140905, end: 20140906
  6. EXFORGE [Interacting]
     Active Substance: AMLODIPINE BESYLATE\VALSARTAN
     Indication: OFF LABEL USE
  7. UVAMIN [Suspect]
     Active Substance: NITROFURANTOIN
     Indication: PROPHYLAXIS URINARY TRACT INFECTION
     Dosage: 2 DF, UNK
     Route: 048
     Dates: start: 20140908, end: 20140909
  8. ASPIRIN CARDIO [Concomitant]
     Active Substance: ASPIRIN
     Indication: CORONARY ARTERY DISEASE
     Dosage: 1 DF, UNK (100 MG)
     Route: 065

REACTIONS (5)
  - Blood creatine phosphokinase increased [Recovering/Resolving]
  - Rhabdomyolysis [Recovering/Resolving]
  - Blood creatinine increased [Recovering/Resolving]
  - Blood urea increased [Recovering/Resolving]
  - Acute kidney injury [Recovering/Resolving]

NARRATIVE: CASE EVENT DATE: 20140909
